FAERS Safety Report 23075330 (Version 1)
Quarter: 2023Q4

REPORT INFORMATION
  Report Type: Spontaneous
  Country: US (occurrence: US)
  Receive Date: 20231017
  Receipt Date: 20231017
  Transmission Date: 20240110
  Serious: No
  Sender: FDA-Public Use
  Company Number: US-SANOFI-01801145

PATIENT
  Sex: Female

DRUGS (1)
  1. DUPIXENT [Suspect]
     Active Substance: DUPILUMAB
     Indication: Asthma
     Dosage: UNK UNK, QOW

REACTIONS (6)
  - Nasal congestion [Recovered/Resolved]
  - Nasal flaring [Recovered/Resolved]
  - Facial pain [Unknown]
  - Facial discomfort [Unknown]
  - Upper respiratory tract infection [Unknown]
  - Sinusitis [Unknown]
